FAERS Safety Report 16952633 (Version 3)
Quarter: 2021Q1

REPORT INFORMATION
  Report Type: Report from Study
  Country: GB (occurrence: GB)
  Receive Date: 20191023
  Receipt Date: 20210226
  Transmission Date: 20210419
  Serious: Yes (Life-Threatening, Hospitalization)
  Sender: FDA-Public Use
  Company Number: GB-ROCHE-2436588

PATIENT
  Age: 67 Year
  Sex: Female
  Weight: 55.7 kg

DRUGS (2)
  1. ATEZOLIZUMAB. [Suspect]
     Active Substance: ATEZOLIZUMAB
     Indication: OVARIAN CANCER RECURRENT
     Dosage: DATE OF MOST RECENT ADMINISTRATION OF ATEZOLIZUMAB OF 1200 MG BEFORE SAE: 20/SEP/2019.
     Route: 042
     Dates: start: 20190830
  2. BEVACIZUMAB. [Suspect]
     Active Substance: BEVACIZUMAB
     Indication: OVARIAN CANCER RECURRENT
     Dosage: DATE OF MOST RECENT ADMINISTRATION OF BEVACIZUMAB BEFORE SAE: 20/SEP/2019 (800 MG).
     Route: 042
     Dates: start: 20190614

REACTIONS (1)
  - Sepsis [Recovered/Resolved]

NARRATIVE: CASE EVENT DATE: 20191005
